FAERS Safety Report 17433924 (Version 2)
Quarter: 2021Q1

REPORT INFORMATION
  Report Type: Spontaneous
  Country: US (occurrence: US)
  Receive Date: 20200219
  Receipt Date: 20210205
  Transmission Date: 20210419
  Serious: No
  Sender: FDA-Public Use
  Company Number: US-AMGEN-USASP2020026204

PATIENT
  Age: 88 Year
  Sex: Female

DRUGS (2)
  1. ARANESP [Suspect]
     Active Substance: DARBEPOETIN ALFA
     Indication: 5Q MINUS SYNDROME
     Dosage: 200 MICROGRAM, Q2WK
     Route: 065
  2. ARANESP [Suspect]
     Active Substance: DARBEPOETIN ALFA
     Dosage: 500 MICROGRAM, Q2WK
     Route: 065
     Dates: start: 201912

REACTIONS (2)
  - Therapeutic response decreased [Unknown]
  - Haemoglobin decreased [Not Recovered/Not Resolved]
